FAERS Safety Report 16306852 (Version 2)
Quarter: 2023Q1

REPORT INFORMATION
  Report Type: Spontaneous
  Country: US (occurrence: US)
  Receive Date: 20190513
  Receipt Date: 20230324
  Transmission Date: 20230418
  Serious: Yes (Other)
  Sender: FDA-Public Use
  Company Number: PHEH2019US020489

PATIENT
  Sex: Male

DRUGS (1)
  1. TASIGNA [Suspect]
     Active Substance: NILOTINIB
     Indication: Chronic myeloid leukaemia
     Dosage: 2 DF, BID
     Route: 048
     Dates: start: 20160105, end: 2019

REACTIONS (11)
  - Acute myocardial infarction [Unknown]
  - Chronic kidney disease [Unknown]
  - Vocal cord polyp [Unknown]
  - Injury [Unknown]
  - Dysphonia [Unknown]
  - Dyspnoea [Unknown]
  - Rash [Unknown]
  - Arteriosclerosis [Unknown]
  - Pain [Unknown]
  - Anxiety [Unknown]
  - Emotional distress [Unknown]
